FAERS Safety Report 5278126-2 (Version None)
Quarter: 2007Q1

REPORT INFORMATION
  Report Type: 
  Country: None (occurrence: None)
  Receive Date: 20061213
  Receipt Date: 20041230
  Transmission Date: 20070707
  Serious: No
  Sender: FDA-Public Use
  Company Number: 2004UW18894

PATIENT
  Age: 65 Year
  Sex: Female

DRUGS (3)
  1. SEROQUEL [Suspect]
     Indication: BIPOLAR DISORDER
     Dosage: 150 MG QOD PO
     Route: 048
     Dates: start: 20040628, end: 20040802
  2. SEROQUEL [Suspect]
     Indication: PSYCHOTIC DISORDER
     Dosage: 150 MG QOD PO
     Route: 048
     Dates: start: 20040628, end: 20040802
  3. PAXIL [Concomitant]

REACTIONS (2)
  - DYSTONIA [None]
  - TARDIVE DYSKINESIA [None]
